FAERS Safety Report 16536448 (Version 4)
Quarter: 2019Q3

REPORT INFORMATION
  Report Type: Spontaneous
  Country: US (occurrence: US)
  Receive Date: 20190706
  Receipt Date: 20190820
  Transmission Date: 20191004
  Serious: Yes (Death, Hospitalization, Other)
  Sender: FDA-Public Use
  Company Number: US-UNITED THERAPEUTICS-UNT-2019-011535

PATIENT
  Age: 76 Year
  Sex: Male
  Weight: 111.11 kg

DRUGS (5)
  1. ADEMPAS [Suspect]
     Active Substance: RIOCIGUAT
     Indication: PRODUCT USED FOR UNKNOWN INDICATION
     Dosage: UNK
     Route: 065
  2. COUMADIN [Concomitant]
     Active Substance: WARFARIN SODIUM
     Indication: PRODUCT USED FOR UNKNOWN INDICATION
     Dosage: UNK
     Route: 065
  3. WARFARIN [Concomitant]
     Active Substance: WARFARIN
     Indication: PRODUCT USED FOR UNKNOWN INDICATION
     Dosage: UNK
     Route: 065
  4. REMODULIN [Suspect]
     Active Substance: TREPROSTINIL
     Indication: PULMONARY ARTERIAL HYPERTENSION
     Dosage: 0.105 ?G/KG, CONTINUING
     Route: 041
     Dates: start: 20100922
  5. REMODULIN [Suspect]
     Active Substance: TREPROSTINIL
     Dosage: UNK UNK, CONTINUING
     Route: 041
     Dates: start: 20140523

REACTIONS (10)
  - Abdominal pain [Unknown]
  - Fluid overload [Unknown]
  - Pain in extremity [Unknown]
  - Myocardial infarction [Fatal]
  - Nausea [Unknown]
  - Haemodynamic instability [Unknown]
  - Hypotension [Fatal]
  - Vomiting [Unknown]
  - Renal failure [Fatal]
  - Product dose omission [Unknown]

NARRATIVE: CASE EVENT DATE: 201907
